FAERS Safety Report 19297958 (Version 3)
Quarter: 2022Q3

REPORT INFORMATION
  Report Type: Report from Study
  Country: US (occurrence: US)
  Receive Date: 20210524
  Receipt Date: 20220823
  Transmission Date: 20221027
  Serious: Yes (Other)
  Sender: FDA-Public Use
  Company Number: US-TAKEDA-2020TUS045824

PATIENT
  Age: 40 Year
  Sex: Female
  Weight: 86.168 kg

DRUGS (14)
  1. PARATHYROID HORMONE [Suspect]
     Active Substance: PARATHYROID HORMONE
     Indication: Hypoparathyroidism
     Dosage: 50 MICROGRAM, QD
     Route: 065
     Dates: start: 201704, end: 201909
  2. PARATHYROID HORMONE [Suspect]
     Active Substance: PARATHYROID HORMONE
     Indication: Hypoparathyroidism
     Dosage: 50 MICROGRAM, QD
     Route: 065
     Dates: start: 201704, end: 201909
  3. PARATHYROID HORMONE [Suspect]
     Active Substance: PARATHYROID HORMONE
     Indication: Hypoparathyroidism
     Dosage: 50 MICROGRAM, QD
     Route: 065
     Dates: start: 201704, end: 201909
  4. PARATHYROID HORMONE [Suspect]
     Active Substance: PARATHYROID HORMONE
     Dosage: UNK
     Route: 065
     Dates: start: 20191206
  5. PARATHYROID HORMONE [Suspect]
     Active Substance: PARATHYROID HORMONE
     Dosage: UNK
     Route: 065
     Dates: start: 20191206
  6. PARATHYROID HORMONE [Suspect]
     Active Substance: PARATHYROID HORMONE
     Dosage: UNK
     Route: 065
     Dates: start: 20191206
  7. ALPRAZOLAM [Concomitant]
     Active Substance: ALPRAZOLAM
     Indication: Anxiety
     Dosage: UNK
     Route: 065
     Dates: start: 20110101
  8. ALPRAZOLAM [Concomitant]
     Active Substance: ALPRAZOLAM
     Indication: Bipolar disorder
  9. TRAMADOL [Concomitant]
     Active Substance: TRAMADOL
     Indication: Back pain
     Dosage: UNK
     Route: 065
     Dates: start: 20111111
  10. BACLOFEN [Concomitant]
     Active Substance: BACLOFEN
     Indication: Muscle spasms
     Dosage: UNK
     Route: 048
     Dates: start: 201512
  11. NORCO [Concomitant]
     Active Substance: ACETAMINOPHEN\HYDROCODONE BITARTRATE
     Indication: Back pain
     Dosage: UNK
     Route: 048
     Dates: start: 201512
  12. SYNTHROID [Concomitant]
     Active Substance: LEVOTHYROXINE SODIUM
     Indication: Thyroid mass
     Dosage: UNK
     Route: 048
     Dates: start: 201708
  13. ZOFRAN [Concomitant]
     Active Substance: ONDANSETRON HYDROCHLORIDE
     Indication: Nausea
     Dosage: UNK
     Route: 048
     Dates: start: 20170206
  14. MAGNESIUM [Concomitant]
     Active Substance: MAGNESIUM
     Indication: Hypocalcaemia
     Dosage: UNK
     Route: 042
     Dates: start: 20191206, end: 20191206

REACTIONS (2)
  - Bipolar disorder [Not Recovered/Not Resolved]
  - Hypocalcaemia [Recovered/Resolved]

NARRATIVE: CASE EVENT DATE: 20190101
